FAERS Safety Report 8401792-7 (Version None)
Quarter: 2012Q2

REPORT INFORMATION
  Report Type: 
  Country: None (occurrence: None)
  Receive Date: 20120601
  Receipt Date: 20120525
  Transmission Date: 20120825
  Serious: Yes (Hospitalization)
  Sender: FDA-Public Use
  Company Number: CA-JNJFOC-20120506733

PATIENT
  Sex: Male
  Weight: 84 kg

DRUGS (8)
  1. SODIUM CHLORIDE [Concomitant]
     Route: 045
     Dates: start: 20120301
  2. LIPITOR [Concomitant]
     Route: 048
     Dates: start: 20020801
  3. MESALAMINE [Concomitant]
     Route: 048
     Dates: start: 20090409
  4. GOLIMUMAB [Suspect]
     Route: 058
     Dates: start: 20100107
  5. ASPIRIN [Concomitant]
     Route: 048
     Dates: start: 20020201
  6. METOPROLOL TARTRATE [Concomitant]
     Route: 048
     Dates: start: 20020201
  7. GOLIMUMAB [Suspect]
     Indication: COLITIS ULCERATIVE
     Route: 058
     Dates: start: 20120329
  8. GOLIMUMAB [Suspect]
     Route: 058
     Dates: start: 20120426

REACTIONS (4)
  - TACHYCARDIA [None]
  - COLITIS ULCERATIVE [None]
  - CONDITION AGGRAVATED [None]
  - SINUSITIS [None]
